FAERS Safety Report 7504323-9 (Version None)
Quarter: 2011Q2

REPORT INFORMATION
  Report Type: 
  Country: None (occurrence: None)
  Receive Date: 20110525
  Receipt Date: 20110513
  Transmission Date: 20111010
  Serious: No
  Sender: FDA-Public Use
  Company Number: FR-ELI_LILLY_AND_COMPANY-FR201103000172

PATIENT
  Age: 56 Year
  Sex: Female

DRUGS (13)
  1. CYMBALTA [Suspect]
     Dosage: 90 MG, UNK
     Route: 048
  2. AMITRIPTYLINE HCL [Concomitant]
     Indication: BACK PAIN
     Dosage: 25 MG, QD
     Route: 048
     Dates: end: 20090910
  3. HEPT-A-MYL [Concomitant]
     Indication: ORTHOSTATIC HYPOTENSION
     Dosage: 6 DF, QD
     Route: 048
     Dates: start: 20090910, end: 20100424
  4. ISKEDYL_FORT [Concomitant]
     Dosage: 3 DF, QD
     Route: 048
     Dates: start: 20091010, end: 20100211
  5. CYMBALTA [Suspect]
     Dosage: 60 MG, UNK
     Route: 048
  6. CYMBALTA [Suspect]
     Dosage: 30 MG, UNK
     Route: 048
  7. FORLAX [Concomitant]
     Indication: CONSTIPATION
     Dosage: 2 DF, QD
     Route: 048
     Dates: start: 20091006, end: 20091106
  8. CYMBALTA [Suspect]
     Indication: DEPRESSION
     Dosage: 30 MG, UNK
     Route: 048
  9. CYMBALTA [Suspect]
     Dosage: 60 MG, UNK
     Route: 048
  10. VALIUM [Concomitant]
     Indication: ANXIETY
     Dosage: 5 MG, QD
     Route: 048
     Dates: start: 20090910, end: 20100424
  11. IMOVANE [Concomitant]
     Indication: INSOMNIA
     Dosage: UNK, PRN
     Route: 048
     Dates: start: 20090910, end: 20091106
  12. CYMBALTA [Suspect]
     Dosage: 60 MG, QD
     Route: 048
     Dates: start: 20090910, end: 20091126
  13. XANAX [Concomitant]
     Dosage: UNK, PRN

REACTIONS (10)
  - RASH [None]
  - PRURITUS [None]
  - PALLOR [None]
  - HEPATOMEGALY [None]
  - ASTHENIA [None]
  - ASPARTATE AMINOTRANSFERASE INCREASED [None]
  - ALANINE AMINOTRANSFERASE INCREASED [None]
  - GAMMA-GLUTAMYLTRANSFERASE INCREASED [None]
  - NAUSEA [None]
  - ABDOMINAL PAIN [None]
